FAERS Safety Report 8078462-0 (Version None)
Quarter: 2012Q1

REPORT INFORMATION
  Report Type: 
  Country: None (occurrence: None)
  Receive Date: 20120123
  Receipt Date: 20120109
  Transmission Date: 20120608
  Serious: Yes (Hospitalization)
  Sender: FDA-Public Use
  Company Number: B0772567A

PATIENT
  Sex: Male

DRUGS (9)
  1. PHENFORMIN HCL SRC [Suspect]
     Indication: TYPE 2 DIABETES MELLITUS
     Dosage: UNK/UNK/ORAL
     Route: 048
     Dates: start: 20090101, end: 20110925
  2. METOPROLOL SUCCINATE [Concomitant]
  3. NITROGLYCERIN [Concomitant]
  4. ALLOPURINOL [Concomitant]
  5. FUROSEMIDE [Concomitant]
  6. SPIRONOLACTONE [Concomitant]
  7. DIGOXIN [Suspect]
     Indication: CARDIAC FAILURE
     Dosage: .25 MG/UNK/ORAL
     Route: 048
     Dates: start: 20110825, end: 20110925
  8. ENALAPRIL MALEATE [Concomitant]
  9. WARFARIN SODIUM [Concomitant]

REACTIONS (3)
  - TOXICITY TO VARIOUS AGENTS [None]
  - HYPOGLYCAEMIA [None]
  - DRUG PRESCRIBING ERROR [None]
